FAERS Safety Report 12043208 (Version 1)
Quarter: 2016Q1

REPORT INFORMATION
  Report Type: Report from Study
  Country: US (occurrence: US)
  Receive Date: 20160208
  Receipt Date: 20160208
  Transmission Date: 20160526
  Serious: No
  Sender: FDA-Public Use
  Company Number: US-ABBVIE-15P-163-1348030-00

PATIENT
  Age: 62 Year
  Sex: Female

DRUGS (2)
  1. HUMIRA [Suspect]
     Active Substance: ADALIMUMAB
     Indication: RHEUMATOID ARTHRITIS
     Route: 065
     Dates: start: 20150114, end: 20150114
  2. HUMIRA [Suspect]
     Active Substance: ADALIMUMAB
     Route: 065
     Dates: start: 20150128

REACTIONS (2)
  - Hypersensitivity [Unknown]
  - Sinusitis [Unknown]

NARRATIVE: CASE EVENT DATE: 20150202
